FAERS Safety Report 9121330 (Version 1)
Quarter: 2013Q1

REPORT INFORMATION
  Report Type: Spontaneous
  Country: DK (occurrence: DK)
  Receive Date: 20130225
  Receipt Date: 20130225
  Transmission Date: 20140127
  Serious: Yes (Other)
  Sender: FDA-Public Use
  Company Number: DK-ROCHE-1193030

PATIENT
  Sex: Male

DRUGS (1)
  1. XOLAIR [Suspect]
     Indication: PRODUCT USED FOR UNKNOWN INDICATION
     Route: 065

REACTIONS (11)
  - Cardiac disorder [Unknown]
  - Obstructive airways disorder [Unknown]
  - Haemorrhage [Unknown]
  - Bleeding time prolonged [Unknown]
  - Anaphylactic reaction [Unknown]
  - Chest pain [Unknown]
  - Contusion [Unknown]
  - Local swelling [Unknown]
  - Joint stiffness [Unknown]
  - Swelling face [Unknown]
  - Weight increased [Unknown]
